FAERS Safety Report 24297166 (Version 2)
Quarter: 2025Q3

REPORT INFORMATION
  Report Type: Spontaneous
  Country: US (occurrence: US)
  Receive Date: 20240909
  Receipt Date: 20250811
  Transmission Date: 20251020
  Serious: No
  Sender: SANOFI AVENTIS
  Company Number: US-SA-2024SA256966

PATIENT
  Age: 34 Year
  Sex: Female
  Weight: 136 kg

DRUGS (1)
  1. DUPIXENT [Suspect]
     Active Substance: DUPILUMAB
     Indication: Dermatitis atopic
     Dosage: 300 MG, QOW
     Route: 058

REACTIONS (6)
  - Dry skin [Unknown]
  - Skin fissures [Unknown]
  - Skin haemorrhage [Unknown]
  - Dermatitis atopic [Recovered/Resolved]
  - Injection site pain [Unknown]
  - Product preparation error [Unknown]

NARRATIVE: CASE EVENT DATE: 20250601
